FAERS Safety Report 23809865 (Version 2)
Quarter: 2024Q2

REPORT INFORMATION
  Report Type: Spontaneous
  Country: US (occurrence: US)
  Receive Date: 20240502
  Receipt Date: 20240626
  Transmission Date: 20240716
  Serious: No
  Sender: FDA-Public Use
  Company Number: US-JNJFOC-20240428927

PATIENT
  Age: 72 Year
  Sex: Female
  Weight: 53.118 kg

DRUGS (3)
  1. IMODIUM A-D [Suspect]
     Active Substance: LOPERAMIDE HYDROCHLORIDE
     Indication: Diarrhoea
     Dosage: FIRST TOOK TWO SOFTGELS AND THEN TOOK ONE ADDITIONAL  SOFT GEL DURING A SINGLE DAY FOR A SINGLE DAY
     Route: 065
     Dates: start: 2023
  2. TAMOXIFEN [Concomitant]
     Active Substance: TAMOXIFEN
     Indication: Neoplasm malignant
     Route: 065
  3. MIRALAX [Concomitant]
     Active Substance: POLYETHYLENE GLYCOL 3350
     Indication: Constipation
     Route: 065

REACTIONS (4)
  - Diarrhoea [Not Recovered/Not Resolved]
  - Product contamination physical [Unknown]
  - Drug ineffective [Unknown]
  - Product formulation issue [Unknown]

NARRATIVE: CASE EVENT DATE: 20230101
